FAERS Safety Report 13694461 (Version 3)
Quarter: 2017Q3

REPORT INFORMATION
  Report Type: Spontaneous
  Country: US (occurrence: US)
  Receive Date: 20170627
  Receipt Date: 20170707
  Transmission Date: 20171127
  Serious: Yes (Other)
  Sender: FDA-Public Use
  Company Number: US-GILEAD-2017-0279824

PATIENT
  Age: 55 Year
  Sex: Male
  Weight: 78.5 kg

DRUGS (15)
  1. DOLUTEGRAVIR [Concomitant]
     Active Substance: DOLUTEGRAVIR
  2. THROUGH [Concomitant]
     Dosage: UNK
     Dates: start: 20120907
  3. DAPSONE. [Concomitant]
     Active Substance: DAPSONE
  4. MARAVIROC [Concomitant]
     Active Substance: MARAVIROC
  5. ABACAVIR W/LAMIVUDINE/ZIDOVUDINE [Concomitant]
     Active Substance: ABACAVIR\LAMIVUDINE\ZIDOVUDINE
  6. VANCOMYCIN [Concomitant]
     Active Substance: VANCOMYCIN
     Dosage: UNK1-1.5G Q8-12H
     Dates: start: 20120712, end: 20120907
  7. NAPROXEN. [Concomitant]
     Active Substance: NAPROXEN
  8. DARUNAVIR W/RITONAVIR [Concomitant]
     Active Substance: DARUNAVIR\RITONAVIR
  9. RIFABUTIN. [Concomitant]
     Active Substance: RIFABUTIN
  10. VIREAD [Suspect]
     Active Substance: TENOFOVIR DISOPROXIL FUMARATE
     Indication: HIV INFECTION
     Dosage: UNK
     Route: 065
     Dates: start: 201406, end: 201503
  11. AZITHROMYCIN ANHYDROUS. [Concomitant]
     Active Substance: AZITHROMYCIN ANHYDROUS
  12. RIFAMPIN. [Concomitant]
     Active Substance: RIFAMPIN
  13. TRUVADA [Suspect]
     Active Substance: EMTRICITABINE\TENOFOVIR DISOPROXIL FUMARATE
     Indication: HIV INFECTION
     Dosage: UNK
     Route: 065
     Dates: start: 20110721, end: 20120908
  14. ETHAMBUTOL [Concomitant]
     Active Substance: ETHAMBUTOL HYDROCHLORIDE
  15. RALTEGRAVIR. [Concomitant]
     Active Substance: RALTEGRAVIR

REACTIONS (5)
  - Anaemia [Unknown]
  - Acute kidney injury [Recovered/Resolved]
  - Gastrointestinal haemorrhage [Unknown]
  - Mental status changes [Unknown]
  - Blood creatinine increased [Unknown]

NARRATIVE: CASE EVENT DATE: 201209
